FAERS Safety Report 15377238 (Version 4)
Quarter: 2020Q3

REPORT INFORMATION
  Report Type: Spontaneous
  Country: US (occurrence: US)
  Receive Date: 20180913
  Receipt Date: 20200903
  Transmission Date: 20201102
  Serious: Yes (Other)
  Sender: FDA-Public Use
  Company Number: US-PFIZER INC-2018366485

PATIENT
  Age: 51 Year
  Sex: Female
  Weight: 138.77 kg

DRUGS (15)
  1. DULERA [Concomitant]
     Active Substance: FORMOTEROL FUMARATE DIHYDRATE\MOMETASONE FUROATE
     Dosage: UNK, AS DIRECTED
  2. CHLORTHALIDONE. [Concomitant]
     Active Substance: CHLORTHALIDONE
     Dosage: 25 MG, 1X/DAY (1 TABLET IN THE MORNING)
     Route: 048
  3. PREDNISONE. [Concomitant]
     Active Substance: PREDNISONE
     Dosage: UNK, 1X/DAY, (1?2 TABLETS)
     Route: 048
  4. XELJANZ XR [Suspect]
     Active Substance: TOFACITINIB CITRATE
     Indication: RHEUMATOID ARTHRITIS
  5. PRAZOSIN HCL [Concomitant]
     Active Substance: PRAZOSIN HYDROCHLORIDE
     Dosage: 2 MG, 3X/DAY
     Route: 048
  6. NYSTATIN. [Concomitant]
     Active Substance: NYSTATIN
     Dosage: UNK UNK, 2X/DAY, (1 APPLICATION TO AFFECTED AREA EXTERNALLY, 2X/DAY)
     Route: 061
  7. TROKENDI XR [Concomitant]
     Active Substance: TOPIRAMATE
     Dosage: 25 MG, 1X/DAY
     Route: 048
  8. BENTYL [Concomitant]
     Active Substance: DICYCLOMINE HYDROCHLORIDE
     Dosage: 120 MG, 4X/DAY
     Route: 048
  9. LYRICA [Concomitant]
     Active Substance: PREGABALIN
     Dosage: 100 MG, 3X/DAY
     Route: 048
  10. XELJANZ XR [Suspect]
     Active Substance: TOFACITINIB CITRATE
     Indication: RHEUMATOID ARTHRITIS
     Dosage: 11 MG, 1X/DAY
     Route: 048
     Dates: start: 2018
  11. TOPAMAX [Concomitant]
     Active Substance: TOPIRAMATE
     Dosage: 50 MG, 2X/DAY (1 TABLET AT BEDTIME, TWICE/DAY)
     Route: 048
  12. ALBUTEROL SULFATE. [Concomitant]
     Active Substance: ALBUTEROL SULFATE
     Dosage: 216 UG, AS NEEDED, (216 UG (2 PUFFS) 108MCG/ACT, AS NEEDED EVERY 4 HRS)
     Route: 055
  13. PROTONIX [Concomitant]
     Active Substance: PANTOPRAZOLE SODIUM
     Dosage: 40 MG, 1X/DAY
     Route: 048
  14. VITAMIN D3 [Concomitant]
     Active Substance: CHOLECALCIFEROL
     Dosage: 50000 IU, WEEKLY
     Route: 048
  15. COZAAR [Concomitant]
     Active Substance: LOSARTAN POTASSIUM
     Dosage: 50 MG, 1X/DAY
     Route: 048

REACTIONS (7)
  - Disease recurrence [Unknown]
  - Tendonitis [Unknown]
  - Neuropathic arthropathy [Unknown]
  - Hypotension [Unknown]
  - Product dose omission in error [Unknown]
  - Carpal tunnel syndrome [Unknown]
  - Toothache [Unknown]
